FAERS Safety Report 16256832 (Version 1)
Quarter: 2019Q2

REPORT INFORMATION
  Report Type: Spontaneous
  Country: US (occurrence: US)
  Receive Date: 20190430
  Receipt Date: 20190430
  Transmission Date: 20190711
  Serious: Yes (Life-Threatening, Hospitalization)
  Sender: FDA-Public Use
  Company Number: US-ALLERGAN-1917822US

PATIENT
  Sex: Male

DRUGS (1)
  1. TESTOSTERONE UNK [Suspect]
     Active Substance: TESTOSTERONE
     Indication: SUPPLEMENTATION THERAPY
     Dosage: ABUSE
     Route: 065

REACTIONS (7)
  - Hepatic function abnormal [Recovered/Resolved]
  - Toxicity to various agents [Recovered/Resolved]
  - Cardiac failure acute [Recovered/Resolved]
  - Portal vein thrombosis [Recovered/Resolved]
  - Congestive cardiomyopathy [Recovered/Resolved]
  - Irritability [Recovered/Resolved]
  - Drug abuse [Unknown]
